FAERS Safety Report 4428678-7 (Version None)
Quarter: 2004Q3

REPORT INFORMATION
  Report Type: 
  Country: None (occurrence: None)
  Receive Date: 20040818
  Receipt Date: 20031014
  Transmission Date: 20050211
  Serious: Yes (Other)
  Sender: FDA-Public Use
  Company Number: US-BRISTOL-MYERS SQUIBB COMPANY-12411872

PATIENT
  Age: 66 Year
  Sex: Female
  Weight: 94 kg

DRUGS (19)
  1. TEQUIN [Suspect]
     Indication: URINARY TRACT INFECTION
     Route: 042
     Dates: start: 20031010, end: 20031013
  2. OXYCONTIN [Concomitant]
  3. PROTONIX [Concomitant]
  4. ATENOLOL [Concomitant]
  5. ACCUPRIL [Concomitant]
  6. TORSEMIDE [Concomitant]
  7. NEURONTIN [Concomitant]
  8. POTASSIUM CHLORIDE [Concomitant]
  9. ALTOCOR [Concomitant]
  10. NEXIUM [Concomitant]
  11. OXYCODONE HCL [Concomitant]
  12. ZETIA [Concomitant]
  13. ASPIRIN [Concomitant]
  14. HYDROCODONE [Concomitant]
  15. FUROSEMIDE [Concomitant]
  16. SENNA-S [Concomitant]
  17. COREG [Concomitant]
  18. NOVOLOG [Concomitant]
  19. GLUCOVANCE [Concomitant]

REACTIONS (4)
  - BLOOD CREATININE INCREASED [None]
  - BRADYCARDIA [None]
  - ELECTROCARDIOGRAM QT PROLONGED [None]
  - HYPERGLYCAEMIA [None]
